FAERS Safety Report 7990669-7 (Version None)
Quarter: 2011Q4

REPORT INFORMATION
  Report Type: 
  Country: None (occurrence: None)
  Receive Date: 20111219
  Receipt Date: 20111207
  Transmission Date: 20120403
  Serious: Yes (Hospitalization, Other)
  Sender: FDA-Public Use
  Company Number: US-BAYER-201037230NA

PATIENT
  Age: 29 Year
  Sex: Female
  Weight: 82 kg

DRUGS (9)
  1. OXYCODONE HCL [Concomitant]
     Indication: BACK PAIN
     Dosage: UNK
  2. ACETAMINOPHEN [Concomitant]
  3. YAZ [Suspect]
     Dosage: UNK
     Route: 048
     Dates: start: 20071201
  4. ALPRAZOLAM [Concomitant]
     Indication: ANXIETY
     Dosage: UNK
  5. HYDROCHLOROTHIAZIDE [Concomitant]
     Indication: BLOOD PRESSURE ABNORMAL
     Dosage: UNK
  6. LEVOTHYROXINE SODIUM [Concomitant]
     Indication: THYROID DISORDER
     Dosage: UNK
  7. XANAX [Concomitant]
  8. METOPROLOL TARTRATE [Concomitant]
     Indication: BLOOD PRESSURE ABNORMAL
     Dosage: UNK
  9. OMEPRAZOLE [Concomitant]
     Dosage: UNK

REACTIONS (11)
  - WEIGHT INCREASED [None]
  - ANXIETY [None]
  - FLATULENCE [None]
  - CHOLECYSTITIS CHRONIC [None]
  - ABDOMINAL DISTENSION [None]
  - CONSTIPATION [None]
  - DIARRHOEA [None]
  - DYSPEPSIA [None]
  - MENTAL DISORDER [None]
  - PAIN [None]
  - DEPRESSION [None]
